FAERS Safety Report 14189707 (Version 3)
Quarter: 2017Q4

REPORT INFORMATION
  Report Type: Report from Study
  Country: MY (occurrence: MY)
  Receive Date: 20171115
  Receipt Date: 20171206
  Transmission Date: 20180321
  Serious: Yes (Death)
  Sender: FDA-Public Use
  Company Number: PHHY2017MY168346

PATIENT
  Age: 58 Year
  Sex: Male

DRUGS (2)
  1. GLIVEC [Suspect]
     Active Substance: IMATINIB MESYLATE
     Indication: ACUTE LYMPHOCYTIC LEUKAEMIA
     Dosage: 600 MG, UNK
     Route: 065
     Dates: start: 20170814, end: 20171109
  2. DEXAMETHASONE. [Concomitant]
     Active Substance: DEXAMETHASONE
     Indication: PRODUCT USED FOR UNKNOWN INDICATION
     Route: 065

REACTIONS (7)
  - Septic embolus [Fatal]
  - Endocarditis [Fatal]
  - Dysarthria [Unknown]
  - Central nervous system infection [Fatal]
  - Brain stem embolism [Fatal]
  - Central nervous system lesion [Unknown]
  - Pyrexia [Unknown]

NARRATIVE: CASE EVENT DATE: 20171102
